FAERS Safety Report 9018739 (Version 1)
Quarter: 2013Q1

REPORT INFORMATION
  Report Type: Spontaneous
  Country: US (occurrence: US)
  Receive Date: 20130118
  Receipt Date: 20130118
  Transmission Date: 20140127
  Serious: No
  Sender: FDA-Public Use
  Company Number: US-ASTRAZENECA-2012SE92188

PATIENT
  Age: 70 Year
  Sex: Male

DRUGS (5)
  1. CRESTOR [Suspect]
     Route: 048
  2. NIASPAN [Suspect]
     Route: 048
     Dates: start: 20121019
  3. BENICAR [Concomitant]
  4. FISH OIL [Concomitant]
  5. ASPIRIN [Concomitant]

REACTIONS (4)
  - Feeling hot [Recovered/Resolved]
  - Flushing [Recovered/Resolved]
  - Incontinence [Recovered/Resolved]
  - Pruritus [Recovered/Resolved]
